FAERS Safety Report 8188349-0 (Version None)
Quarter: 2012Q1

REPORT INFORMATION
  Report Type: 
  Country: None (occurrence: None)
  Receive Date: 20120221
  Receipt Date: 20110111
  Transmission Date: 20120608
  Serious: Yes (Hospitalization)
  Sender: FDA-Public Use
  Company Number: PHHY2010US90190

PATIENT
  Age: 33 Year
  Sex: Male

DRUGS (1)
  1. TOBI [Suspect]

REACTIONS (3)
  - PULMONARY FUNCTION TEST DECREASED [None]
  - MALAISE [None]
  - FORCED EXPIRATORY VOLUME DECREASED [None]
